FAERS Safety Report 7472322-1 (Version None)
Quarter: 2011Q2

REPORT INFORMATION
  Report Type: 
  Country: None (occurrence: None)
  Receive Date: 20110511
  Receipt Date: 20110503
  Transmission Date: 20111010
  Serious: Yes (Hospitalization)
  Sender: FDA-Public Use
  Company Number: US-ASTELLAS-2011US001047

PATIENT
  Sex: Female

DRUGS (11)
  1. VIBATIV [Suspect]
     Indication: IMPAIRED HEALING
  2. CEFTRIAXONE [Suspect]
     Indication: IMPAIRED HEALING
  3. CEFEPIME [Suspect]
     Indication: IMPAIRED HEALING
  4. AUGMENTIN [Concomitant]
     Indication: IMPAIRED HEALING
  5. CEFTRIAXONE [Suspect]
     Indication: DIABETIC FOOT
     Dosage: UNK
     Route: 051
     Dates: start: 20110112
  6. CIPRO [Concomitant]
     Indication: DIABETIC FOOT
     Dosage: UNK
     Route: 065
  7. CEFEPIME [Suspect]
     Indication: DIABETIC FOOT
     Dosage: UNK
     Route: 065
  8. VIBATIV [Suspect]
     Indication: DIABETIC ULCER
     Dosage: UNK
     Route: 042
     Dates: start: 20110126, end: 20110216
  9. VIBATIV [Suspect]
     Indication: OSTEOMYELITIS
  10. CIPRO [Concomitant]
     Indication: IMPAIRED HEALING
  11. AUGMENTIN [Concomitant]
     Indication: DIABETIC FOOT
     Dosage: UNK
     Route: 065

REACTIONS (4)
  - SKIN LESION [None]
  - DIARRHOEA [None]
  - LEUKOPENIA [None]
  - THROMBOCYTOPENIA [None]
